FAERS Safety Report 23459024 (Version 1)
Quarter: 2024Q1

REPORT INFORMATION
  Report Type: Report from Study
  Country: US (occurrence: US)
  Receive Date: 20240131
  Receipt Date: 20240131
  Transmission Date: 20240409
  Serious: No
  Sender: FDA-Public Use
  Company Number: US-ALXN-202401USA001647US

PATIENT

DRUGS (1)
  1. STRENSIQ [Suspect]
     Active Substance: ASFOTASE ALFA
     Indication: Hypophosphatasia
     Dosage: UNK
     Route: 065

REACTIONS (11)
  - Back pain [Unknown]
  - Drug ineffective [Unknown]
  - Arthralgia [Unknown]
  - Pain in extremity [Unknown]
  - Musculoskeletal stiffness [Not Recovered/Not Resolved]
  - Gingival swelling [Unknown]
  - Heart rate decreased [Unknown]
  - Oropharyngeal cobble stone mucosa [Unknown]
  - White blood cell count decreased [Unknown]
  - Blood creatine increased [Unknown]
  - Intervertebral disc protrusion [Unknown]

NARRATIVE: CASE EVENT DATE: 20230821
